FAERS Safety Report 4540834-6 (Version None)
Quarter: 2004Q4

REPORT INFORMATION
  Report Type: 
  Country: None (occurrence: None)
  Receive Date: 20041228
  Receipt Date: 20041222
  Transmission Date: 20050328
  Serious: Yes (Other)
  Sender: FDA-Public Use
  Company Number: 2004017089

PATIENT
  Age: 62 Year
  Sex: Female

DRUGS (4)
  1. LIPITOR [Suspect]
     Indication: HYPERCHOLESTEROLAEMIA
     Dosage: 10 MG, ORAL
     Route: 048
     Dates: end: 20030501
  2. LORATADINE [Concomitant]
  3. TERBUTALINE SULFATE [Concomitant]
  4. BUDESONIDE (BUDESONIDE) [Concomitant]

REACTIONS (4)
  - FATIGUE [None]
  - HEPATIC ENZYME INCREASED [None]
  - HEPATITIS GRANULOMATOUS [None]
  - MALAISE [None]
